FAERS Safety Report 23171092 (Version 1)
Quarter: 2023Q4

REPORT INFORMATION
  Report Type: Spontaneous
  Country: US (occurrence: None)
  Receive Date: 20231110
  Receipt Date: 20231110
  Transmission Date: 20240110
  Serious: Yes (Hospitalization)
  Sender: FDA-Public Use
  Company Number: None

PATIENT
  Age: 45 Year
  Sex: Male
  Weight: 94.5 kg

DRUGS (2)
  1. AUSTEDO [Suspect]
     Active Substance: DEUTETRABENAZINE
  2. RIVOSTATIN [Concomitant]

REACTIONS (3)
  - Fall [None]
  - Ankle fracture [None]
  - Multiple fractures [None]

NARRATIVE: CASE EVENT DATE: 20230715
